FAERS Safety Report 6528321-7 (Version None)
Quarter: 2010Q1

REPORT INFORMATION
  Report Type: 
  Country: None (occurrence: None)
  Receive Date: 20100106
  Receipt Date: 20091229
  Transmission Date: 20100710
  Serious: Yes (Hospitalization, Other)
  Sender: FDA-Public Use
  Company Number: US-JNJFOC-20100100015

PATIENT
  Sex: Female
  Weight: 72.58 kg

DRUGS (4)
  1. DURAGESIC-100 [Suspect]
     Indication: PAIN
     Route: 062
  2. DURAGESIC-100 [Suspect]
     Dosage: 100+100 UG/HR (NDC NUMBER # 50458-094-05) 50 UG/HR (NDC NUMBER # 50458-092-05)
     Route: 062
  3. ADVIL [Concomitant]
     Indication: DYSMENORRHOEA
     Route: 048
  4. MOTRIN [Concomitant]
     Indication: DYSMENORRHOEA
     Route: 048

REACTIONS (7)
  - BREAKTHROUGH PAIN [None]
  - DRUG DOSE OMISSION [None]
  - DRUG EFFECT DECREASED [None]
  - NAUSEA [None]
  - PAIN IN EXTREMITY [None]
  - SPINAL FUSION SURGERY [None]
  - THERAPEUTIC RESPONSE DECREASED [None]
